FAERS Safety Report 14332927 (Version 4)
Quarter: 2018Q2

REPORT INFORMATION
  Report Type: Spontaneous
  Country: PT (occurrence: PT)
  Receive Date: 20171228
  Receipt Date: 20180411
  Transmission Date: 20180711
  Serious: Yes (Death, Other)
  Sender: FDA-Public Use
  Company Number: PT-AUROBINDO-AUR-APL-2017-47400

PATIENT
  Age: 32 Year
  Sex: Male

DRUGS (35)
  1. ZOLPIDEM [Suspect]
     Active Substance: ZOLPIDEM\ZOLPIDEM TARTRATE
     Indication: PRODUCT USED FOR UNKNOWN INDICATION
     Dosage: UNK ()
     Route: 065
  2. DIAZEPAM. [Suspect]
     Active Substance: DIAZEPAM
     Dosage: UNK ()
     Route: 048
  3. BROMAZEPAM [Suspect]
     Active Substance: BROMAZEPAM
     Indication: BIPOLAR DISORDER
     Dosage: UNK
     Route: 048
  4. BROMAZEPAM [Suspect]
     Active Substance: BROMAZEPAM
     Dosage: UNK
     Route: 048
  5. HALOPERIDOL. [Suspect]
     Active Substance: HALOPERIDOL
     Dosage: UNK ()
     Route: 048
  6. BROMAZEPAM [Suspect]
     Active Substance: BROMAZEPAM
     Dosage: UNK ()
     Route: 065
  7. LORAZEPAM. [Suspect]
     Active Substance: LORAZEPAM
     Indication: BIPOLAR DISORDER
     Dosage: UNK
     Route: 048
  8. LORAZEPAM. [Suspect]
     Active Substance: LORAZEPAM
     Indication: ANXIOLYTIC THERAPY
     Dosage: UNK ()
     Route: 048
  9. BROMAZEPAM [Suspect]
     Active Substance: BROMAZEPAM
     Dosage: UNK ()
     Route: 048
  10. NORDAZEPAM [Suspect]
     Active Substance: NORDAZEPAM
     Indication: PRODUCT USED FOR UNKNOWN INDICATION
     Route: 048
  11. RISPERIDONE FILM-COATED TABLETS [Suspect]
     Active Substance: RISPERIDONE
     Indication: PRODUCT USED FOR UNKNOWN INDICATION
     Dosage: UNK
     Route: 048
  12. DIAZEPAM. [Suspect]
     Active Substance: DIAZEPAM
     Dosage: UNK ()
     Route: 048
  13. DIAZEPAM. [Suspect]
     Active Substance: DIAZEPAM
     Dosage: UNK ()
     Route: 048
  14. FLUOXETINE [Suspect]
     Active Substance: FLUOXETINE HYDROCHLORIDE
     Dosage: UNK ()
     Route: 048
  15. HALOPERIDOL. [Suspect]
     Active Substance: HALOPERIDOL
     Indication: BIPOLAR DISORDER
     Dosage: UNK
     Route: 048
  16. BROMAZEPAM [Suspect]
     Active Substance: BROMAZEPAM
     Dosage: UNK ()
     Route: 065
  17. QUETIAPINE FILM-COATED TABLET [Suspect]
     Active Substance: QUETIAPINE
     Indication: BIPOLAR DISORDER
     Dosage: UNK ()
     Route: 048
  18. PAROXETINE FILM-COATED TABLET [Suspect]
     Active Substance: PAROXETINE
     Indication: BIPOLAR DISORDER
     Dosage: UNK
     Route: 048
  19. FLUOXETINE [Suspect]
     Active Substance: FLUOXETINE HYDROCHLORIDE
     Indication: BIPOLAR DISORDER
     Dosage: UNK
     Route: 048
  20. HALOPERIDOL. [Suspect]
     Active Substance: HALOPERIDOL
     Dosage: ()
     Route: 065
  21. HALOPERIDOL. [Suspect]
     Active Substance: HALOPERIDOL
     Dosage: ()
     Route: 065
  22. LORAZEPAM. [Suspect]
     Active Substance: LORAZEPAM
     Dosage: UNK ()
     Route: 065
  23. DIAZEPAM. [Suspect]
     Active Substance: DIAZEPAM
     Indication: PRODUCT USED FOR UNKNOWN INDICATION
     Dosage: UNK
     Route: 048
  24. FLUOXETINE [Suspect]
     Active Substance: FLUOXETINE HYDROCHLORIDE
     Dosage: UNK ()
     Route: 048
  25. HALOPERIDOL. [Suspect]
     Active Substance: HALOPERIDOL
     Dosage: UNK ()
     Route: 048
  26. BROMAZEPAM [Suspect]
     Active Substance: BROMAZEPAM
     Dosage: UNK ()
     Route: 048
  27. OLANZAPINE TABLET [Suspect]
     Active Substance: OLANZAPINE
     Dosage: UNK ()
     Route: 048
  28. FLUOXETINE [Suspect]
     Active Substance: FLUOXETINE HYDROCHLORIDE
     Dosage: UNK ()
     Route: 048
  29. FLUOXETINE [Suspect]
     Active Substance: FLUOXETINE HYDROCHLORIDE
     Dosage: UNK ()
     Route: 048
  30. HALOPERIDOL. [Suspect]
     Active Substance: HALOPERIDOL
     Dosage: UNK
     Route: 048
  31. OLANZAPINE TABLET [Suspect]
     Active Substance: OLANZAPINE
     Indication: BIPOLAR DISORDER
     Dosage: ()
     Route: 048
  32. FLUOXETINE [Suspect]
     Active Substance: FLUOXETINE HYDROCHLORIDE
     Dosage: UNK
     Route: 048
  33. FLUOXETINE [Suspect]
     Active Substance: FLUOXETINE HYDROCHLORIDE
     Dosage: UNK ()
     Route: 048
  34. HALOPERIDOL. [Suspect]
     Active Substance: HALOPERIDOL
     Dosage: UNK ()
     Route: 048
  35. BROMAZEPAM [Suspect]
     Active Substance: BROMAZEPAM
     Dosage: UNK ()
     Route: 048

REACTIONS (11)
  - Visceral congestion [Fatal]
  - Angiopathy [Fatal]
  - Intentional overdose [Fatal]
  - Vascular occlusion [Fatal]
  - Cerebrovascular stenosis [Fatal]
  - Acute pulmonary oedema [Fatal]
  - Oral discharge [Unknown]
  - Completed suicide [Fatal]
  - Vascular stenosis [Fatal]
  - Pulmonary congestion [Fatal]
  - Toxicity to various agents [Fatal]
